FAERS Safety Report 7001191-9 (Version None)
Quarter: 2010Q3

REPORT INFORMATION
  Report Type: 
  Country: None (occurrence: None)
  Receive Date: 20100920
  Receipt Date: 20070511
  Transmission Date: 20110219
  Serious: Yes (Disabling, Other)
  Sender: FDA-Public Use
  Company Number: US-ASTRAZENECA-2006UW23006

PATIENT
  Age: 35 Year
  Sex: Female
  Weight: 121.8 kg

DRUGS (14)
  1. SEROQUEL [Suspect]
     Indication: DEPRESSION
     Dosage: STRENGTH-25MG, 100MG, 200MG  DOSE-25MG-700MG
     Route: 048
     Dates: start: 20040614
  2. SEROQUEL [Suspect]
     Route: 048
  3. ABILIFY [Concomitant]
     Dates: start: 20060101, end: 20070101
  4. RISPERDAL [Concomitant]
     Dates: start: 20060101, end: 20070101
  5. PROPOXYPHENE HCL [Concomitant]
     Dosage: TAKE ONE CAPSULE EVERY 4 TO 6 HOURS IF NEEDED
     Dates: start: 20040615
  6. AXERT [Concomitant]
     Indication: HEADACHE
     Dosage: TAKE 1 TABLET AT ONSET OF HEADACHE-MAY REPEAT
     Dates: start: 20040621
  7. TIZANIDINE HCL [Concomitant]
     Dates: start: 20040625
  8. XANAX [Concomitant]
     Dosage: STRENGTH-1MG  DOSE- 3MG-4MG DAILY
     Dates: start: 20040521
  9. LEXAPRO [Concomitant]
     Dosage: STRENGTH-10MG, 20MG, 40MG  DOSE-10MG-40MG
     Dates: start: 20040521
  10. LORAZEPAM [Concomitant]
     Dates: start: 20040916
  11. TIAGABINE HCL [Concomitant]
     Dates: start: 20040917
  12. CODEINE ELIXIR [Concomitant]
     Dosage: 5 CC, EVERY 6 HOURS
     Dates: start: 20040627
  13. OXYCODONE HCL [Concomitant]
     Dosage: AS NEEDED
     Dates: start: 20040618
  14. GUAIFENESIN [Concomitant]
     Route: 048
     Dates: start: 20071002

REACTIONS (3)
  - DIABETES MELLITUS [None]
  - DIABETES MELLITUS INADEQUATE CONTROL [None]
  - DIABETIC COMA [None]
